FAERS Safety Report 9282534 (Version 3)
Quarter: 2013Q3

REPORT INFORMATION
  Report Type: Spontaneous
  Country: US (occurrence: US)
  Receive Date: 20130510
  Receipt Date: 20130712
  Transmission Date: 20140515
  Serious: Yes (Other)
  Sender: FDA-Public Use
  Company Number: US-PFIZER INC-2013145016

PATIENT
  Age: 42 Year
  Sex: Female
  Weight: 51.7 kg

DRUGS (3)
  1. LYRICA [Suspect]
     Indication: FIBROMYALGIA
     Dosage: 300 MG, 1X/DAY
     Route: 048
     Dates: start: 2010, end: 201207
  2. PROTONIX [Concomitant]
     Dosage: UNK
  3. ZANAFLEX [Concomitant]
     Indication: MUSCLE SPASMS
     Dosage: UNK, AS NEEDED

REACTIONS (7)
  - Blood potassium decreased [Unknown]
  - Activities of daily living impaired [Unknown]
  - Impaired work ability [Unknown]
  - Muscle spasms [Unknown]
  - Skin burning sensation [Unknown]
  - Dyskinesia [Unknown]
  - Diarrhoea [Unknown]
